FAERS Safety Report 22625356 (Version 5)
Quarter: 2024Q1

REPORT INFORMATION
  Report Type: Spontaneous
  Country: US (occurrence: US)
  Receive Date: 20230621
  Receipt Date: 20240105
  Transmission Date: 20240410
  Serious: No
  Sender: FDA-Public Use
  Company Number: US-PFIZER INC-PV202300107102

PATIENT
  Age: 79 Year
  Sex: Female

DRUGS (3)
  1. ZARONTIN [Suspect]
     Active Substance: ETHOSUXIMIDE
     Dosage: 1250 MG, DAILY
     Route: 048
  2. ZARONTIN [Suspect]
     Active Substance: ETHOSUXIMIDE
     Dosage: UNK
  3. DILANTIN [Concomitant]
     Active Substance: PHENYTOIN
     Dosage: 3 TIMES DAILY ON ODD DAYS AND 4 TIMES DAILY ON EVEN DAYS)
     Route: 048

REACTIONS (3)
  - Depression [Unknown]
  - Influenza [Unknown]
  - Speech disorder [Unknown]
